FAERS Safety Report 7289700-6 (Version None)
Quarter: 2011Q1

REPORT INFORMATION
  Report Type: 
  Country: None (occurrence: None)
  Receive Date: 20110214
  Receipt Date: 20110127
  Transmission Date: 20110831
  Serious: No
  Sender: FDA-Public Use
  Company Number: US-BIOGENIDEC-2010BI036058

PATIENT
  Sex: Female

DRUGS (1)
  1. TYSABRI [Suspect]
     Indication: MULTIPLE SCLEROSIS
     Route: 042
     Dates: start: 20070710, end: 20100630

REACTIONS (10)
  - COUGH [None]
  - DENTAL CARIES [None]
  - CHEST PAIN [None]
  - MULTIPLE SCLEROSIS [None]
  - PNEUMONIA [None]
  - PHARYNGITIS STREPTOCOCCAL [None]
  - TOOTH INFECTION [None]
  - OROPHARYNGEAL PAIN [None]
  - PYREXIA [None]
  - INFLUENZA [None]
